FAERS Safety Report 16563287 (Version 2)
Quarter: 2019Q3

REPORT INFORMATION
  Report Type: Report from Study
  Country: US (occurrence: US)
  Receive Date: 20190711
  Receipt Date: 20190803
  Transmission Date: 20191004
  Serious: Yes (Hospitalization, Other)
  Sender: FDA-Public Use
  Company Number: PHEH2019US028503

PATIENT
  Age: 26 Year
  Sex: Female
  Weight: 62.2 kg

DRUGS (37)
  1. DECADRON [Concomitant]
     Active Substance: DEXAMETHASONE
     Dosage: 6 MG, Q12H
     Route: 048
  2. CELEBREX [Concomitant]
     Active Substance: CELECOXIB
     Indication: PAIN IN EXTREMITY
  3. COLACE [Concomitant]
     Active Substance: DOCUSATE SODIUM
     Indication: PROPHYLAXIS
     Dosage: UNK
     Route: 065
  4. NYSTATIN. [Concomitant]
     Active Substance: NYSTATIN
     Indication: PROPHYLAXIS
     Dosage: UNK
     Route: 065
  5. DECADRON [Concomitant]
     Active Substance: DEXAMETHASONE
     Dosage: 2 MG, Q12H
     Route: 048
  6. SENOKOT [Concomitant]
     Active Substance: SENNOSIDES
     Indication: PROPHYLAXIS
     Dosage: 8.6 MG, BID
     Route: 048
  7. DOCUSATE [Concomitant]
     Active Substance: DOCUSATE
     Indication: CONSTIPATION
     Dosage: 200 MG, QD (AS NEEDED)
     Route: 048
  8. EMLA [Concomitant]
     Active Substance: LIDOCAINE\PRILOCAINE
     Indication: PRODUCT USED FOR UNKNOWN INDICATION
     Dosage: UNK
     Route: 065
  9. MULTI VITAMIN [Concomitant]
     Active Substance: VITAMINS
     Indication: PRODUCT USED FOR UNKNOWN INDICATION
     Dosage: 1 DF, QD
     Route: 048
  10. GEMCITABINE. [Suspect]
     Active Substance: GEMCITABINE
     Indication: OSTEOSARCOMA METASTATIC
     Dosage: UNK
     Route: 065
  11. MEDROL [Concomitant]
     Active Substance: METHYLPREDNISOLONE
     Indication: PRODUCT USED FOR UNKNOWN INDICATION
     Dosage: 4 MG, UNK
     Route: 065
  12. KEPPRA [Concomitant]
     Active Substance: LEVETIRACETAM
     Indication: PRODUCT USED FOR UNKNOWN INDICATION
     Dosage: 250 MG, UNK
     Route: 065
     Dates: end: 20190620
  13. ZOFRAN [Concomitant]
     Active Substance: ONDANSETRON HYDROCHLORIDE
     Indication: PROPHYLAXIS OF NAUSEA AND VOMITING
     Dosage: 8 MG, Q8H (AS NEEDED)
     Route: 065
  14. FLONASE [Concomitant]
     Active Substance: FLUTICASONE PROPIONATE
     Indication: PRODUCT USED FOR UNKNOWN INDICATION
     Dosage: 2 OT, QD (2 SPRAYS INTO EACH SIDE OF NSOE)
     Route: 045
  15. NEULASTA [Concomitant]
     Active Substance: PEGFILGRASTIM
     Indication: OSTEOSARCOMA METASTATIC
     Dosage: EVERY 21 DAYS (ON DAY 8)
     Route: 065
  16. MEGACE [Concomitant]
     Active Substance: MEGESTROL ACETATE
     Indication: NUTRITIONAL SUPPLEMENTATION
     Dosage: 80 MG, BID
     Route: 048
  17. BIOTENE NOS [Concomitant]
     Active Substance: CETYLPYRIDINIUM CHLORIDE OR SODIUM FLUORIDE OR SODIUM MONOFLUOROPHOSPHATE OR GLUCOSE OXIDASE\LACTOFERRIN\LACTOPEROXIDASE BOVINE\LYSOZYME
     Indication: PROPHYLAXIS
     Dosage: UNK
     Route: 065
  18. KISQALI [Suspect]
     Active Substance: RIBOCICLIB
     Dosage: 200 MG, BID
     Route: 065
     Dates: start: 20190620
  19. DECADRON [Concomitant]
     Active Substance: DEXAMETHASONE
     Dosage: ON1 6MG AND ONE 2MG TABLET, BID
     Route: 048
  20. ATIVAN [Concomitant]
     Active Substance: LORAZEPAM
     Indication: PROPHYLAXIS OF NAUSEA AND VOMITING
     Dosage: 1 MG, Q6H (AS NEEDED)
     Route: 065
  21. MEGACE [Concomitant]
     Active Substance: MEGESTROL ACETATE
     Indication: WEIGHT DECREASED
  22. ZANTAC [Concomitant]
     Active Substance: RANITIDINE HYDROCHLORIDE
     Indication: GASTROINTESTINAL DISORDER PROPHYLAXIS
     Dosage: 150 MG, BID
     Route: 048
  23. RITALIN [Concomitant]
     Active Substance: METHYLPHENIDATE HYDROCHLORIDE
     Indication: PAIN
     Dosage: 20 MG, BID (AS NEEDED)
     Route: 065
  24. PENTAMIDINE [Concomitant]
     Active Substance: PENTAMIDINE
     Dosage: UNK
     Route: 065
     Dates: start: 20190619
  25. MIRALAX [Concomitant]
     Active Substance: POLYETHYLENE GLYCOL 3350
     Indication: CONSTIPATION
     Dosage: 17 G, QD (AS NEEDED)
     Route: 048
  26. MICRONOR [Suspect]
     Active Substance: NORETHINDRONE
     Indication: PRODUCT USED FOR UNKNOWN INDICATION
     Dosage: UNK
     Route: 065
  27. ZANAFLEX [Concomitant]
     Active Substance: TIZANIDINE HYDROCHLORIDE
     Indication: PRODUCT USED FOR UNKNOWN INDICATION
     Dosage: 4 MG, UNK
     Route: 065
  28. TRANSDERM SCOP [Concomitant]
     Active Substance: SCOPOLAMINE
     Indication: PROPHYLAXIS OF NAUSEA AND VOMITING
     Dosage: 1 DF, EVERY 3 DAYS
     Route: 003
  29. GEMCITABINE. [Suspect]
     Active Substance: GEMCITABINE
     Dosage: 1.5XMIVF, CYCLE 8: DAYS 1 AND 8
     Route: 065
     Dates: start: 20190617
  30. AYGESTIN [Suspect]
     Active Substance: NORETHINDRONE ACETATE
     Dosage: UNK
     Route: 065
  31. CELEBREX [Concomitant]
     Active Substance: CELECOXIB
     Indication: ARTHRALGIA
     Dosage: 100 MG, BID
     Route: 048
  32. MORPHINE [Concomitant]
     Active Substance: MORPHINE
     Indication: PAIN
     Dosage: 5 MG, PRN
     Route: 065
  33. PENTAMIDINE [Concomitant]
     Active Substance: PENTAMIDINE
     Indication: ANTIFUNGAL PROPHYLAXIS
     Dosage: MONTHLY
     Route: 065
  34. KISQALI [Suspect]
     Active Substance: RIBOCICLIB
     Indication: OSTEOSARCOMA METASTATIC
     Dosage: 200 MG, BID
     Route: 065
     Dates: end: 20190618
  35. AYGESTIN [Suspect]
     Active Substance: NORETHINDRONE ACETATE
     Indication: PRODUCT USED FOR UNKNOWN INDICATION
     Dosage: 1 DF, QD
     Route: 048
     Dates: start: 20190324, end: 20190331
  36. DECADRON [Concomitant]
     Active Substance: DEXAMETHASONE
     Indication: PROPHYLAXIS
     Dosage: 5 MG/M2, Q12H
     Route: 048
  37. VITAMIN D3 [Concomitant]
     Active Substance: CHOLECALCIFEROL
     Indication: VITAMIN SUPPLEMENTATION
     Dosage: 10000 U, QW (ON SUNDAYS)
     Route: 048

REACTIONS (23)
  - Rhinitis allergic [Unknown]
  - Urinary retention [Recovering/Resolving]
  - Osteosarcoma metastatic [Unknown]
  - Dehydration [Unknown]
  - Vaginal haemorrhage [Unknown]
  - Headache [Unknown]
  - Burning sensation [Recovered/Resolved]
  - Arthralgia [Unknown]
  - Hot flush [Unknown]
  - Oedema peripheral [Recovering/Resolving]
  - Catheter site infection [Unknown]
  - Klebsiella infection [Unknown]
  - Flushing [Recovered/Resolved]
  - Menstrual disorder [Unknown]
  - Oestradiol decreased [Unknown]
  - Product use in unapproved indication [Unknown]
  - Nasal congestion [Unknown]
  - Pain in extremity [Unknown]
  - Visual impairment [Unknown]
  - Weight bearing difficulty [Unknown]
  - Malignant neoplasm progression [Unknown]
  - Pain [Unknown]
  - Dizziness [Unknown]

NARRATIVE: CASE EVENT DATE: 20190616
